FAERS Safety Report 4909125-5 (Version None)
Quarter: 2006Q1

REPORT INFORMATION
  Report Type: 
  Country: None (occurrence: None)
  Receive Date: 20060208
  Receipt Date: 20060131
  Transmission Date: 20060701
  Serious: Yes (Death)
  Sender: FDA-Public Use
  Company Number: SUS1-2006-00121

PATIENT
  Sex: Male

DRUGS (2)
  1. ADDERALL 10 [Suspect]
  2. CELEXA [Concomitant]

REACTIONS (1)
  - COMPLETED SUICIDE [None]
